FAERS Safety Report 9206299 (Version 3)
Quarter: 2013Q2

REPORT INFORMATION
  Report Type: Spontaneous
  Country: None (occurrence: None)
  Receive Date: 20130401
  Receipt Date: 20130425
  Transmission Date: 20140414
  Serious: Yes (Hospitalization)
  Sender: FDA-Public Use
  Company Number: 2012-7635

PATIENT
  Age: 13 Year
  Sex: Male
  Weight: 27.2 kg

DRUGS (8)
  1. INCRELEX [Suspect]
     Indication: BODY HEIGHT BELOW NORMAL
     Dosage: 146.52 UG/KG (73.26 UG/KG, 2 IN 1 D, SUBCUTANEOUS?
     Route: 058
     Dates: start: 20100621
  2. INCRELEX [Suspect]
     Indication: FAILURE TO THRIVE
     Dosage: 146.52 UG/KG (73.26 UG/KG, 2 IN 1 D, SUBCUTANEOUS?
     Route: 058
     Dates: start: 20100621
  3. INCRELEX [Suspect]
     Indication: PRODUCT USED FOR UNKNOWN INDICATION
     Dosage: 146.52 UG/KG (73.26 UG/KG, 2 IN 1 D, SUBCUTANEOUS?
     Route: 058
     Dates: start: 20100621
  4. VYVANSE (ALL OTHER THERAPEUTIC PRODUCTS) [Concomitant]
  5. INTUNIV (GUANFACINE) [Concomitant]
  6. OMEPRAZOLE (OMEPRAZOLE) [Concomitant]
  7. VITAMIN D3 (COLECALCIFEROL) [Concomitant]
  8. ZINC (ZINC) [Concomitant]

REACTIONS (16)
  - Dehydration [None]
  - Abdominal distension [None]
  - Vomiting [None]
  - Malabsorption [None]
  - Pyloric stenosis [None]
  - Oesophagitis [None]
  - Gastritis [None]
  - Duodenitis [None]
  - Gastroenteritis viral [None]
  - Lactase deficiency [None]
  - Hernia [None]
  - Coeliac disease [None]
  - Hypovitaminosis [None]
  - Autoimmune disorder [None]
  - Immunodeficiency [None]
  - Overgrowth bacterial [None]
